FAERS Safety Report 8849888 (Version 1)
Quarter: 2012Q4

REPORT INFORMATION
  Report Type: 
  Country: US (occurrence: US)
  Receive Date: 20121019
  Receipt Date: 20121019
  Transmission Date: 20130627
  Serious: No
  Sender: FDA-Public Use
  Company Number: US-BAYER-2012-106755

PATIENT
  Age: 64 Year
  Sex: Male
  Weight: 99.77 kg

DRUGS (7)
  1. ALEVE CAPLET/TABLET,MIDOL EXTENDED RELIEF CAPLET [Suspect]
     Indication: ARTHRITIS
     Dosage: TAB, PRN
     Dates: start: 200907
  2. ALEVE CAPLET/TABLET,MIDOL EXTENDED RELIEF CAPLET [Suspect]
     Indication: ANALGESIC THERAPY
  3. LISINOPRIL [Concomitant]
  4. SORIATANE [Concomitant]
  5. HEXALEN [Concomitant]
  6. ANTIBIOTICS [Concomitant]
  7. CEPHALEXIN [Concomitant]

REACTIONS (7)
  - Eczema [None]
  - Pain in extremity [None]
  - Erythema [None]
  - Skin exfoliation [None]
  - Blister [None]
  - Blister [None]
  - Skin exfoliation [None]
